FAERS Safety Report 5640850-7 (Version None)
Quarter: 2008Q1

REPORT INFORMATION
  Report Type: 
  Country: None (occurrence: None)
  Receive Date: 20080227
  Receipt Date: 20080219
  Transmission Date: 20080703
  Serious: Yes (Hospitalization)
  Sender: FDA-Public Use
  Company Number: MX-ELI_LILLY_AND_COMPANY-MX200801005015

PATIENT
  Age: 70 Year
  Sex: Male

DRUGS (2)
  1. CIALIS [Suspect]
     Indication: ERECTILE DYSFUNCTION
     Dosage: 20 MG, WEEKLY (1/W)
     Route: 048
     Dates: start: 20070501, end: 20070601
  2. CIALIS [Suspect]
     Dosage: 20 MG, UNKNOWN
     Route: 048
     Dates: start: 20080111, end: 20080111

REACTIONS (4)
  - PAIN IN EXTREMITY [None]
  - PROSTATIC SPECIFIC ANTIGEN INCREASED [None]
  - TRANSURETHRAL PROSTATECTOMY [None]
  - VISION BLURRED [None]
